FAERS Safety Report 13162930 (Version 5)
Quarter: 2017Q2

REPORT INFORMATION
  Report Type: Spontaneous
  Country: FR (occurrence: FR)
  Receive Date: 20170130
  Receipt Date: 20170518
  Transmission Date: 20170830
  Serious: Yes (Death, Other)
  Sender: FDA-Public Use
  Company Number: FR-GLAXOSMITHKLINE-FR2016GSK196384

PATIENT
  Age: 64 Year
  Sex: Male

DRUGS (10)
  1. LAMICTAL [Suspect]
     Active Substance: LAMOTRIGINE
     Dosage: 75 MG, QD
     Route: 048
     Dates: start: 20111003
  2. TEMERIT [Concomitant]
     Active Substance: NEBIVOLOL
     Dosage: UNK
     Dates: end: 20110901
  3. EXELON [Concomitant]
     Active Substance: RIVASTIGMINE TARTRATE
     Dosage: 6 MG, BID
  4. EBIXA [Concomitant]
     Active Substance: MEMANTINE HYDROCHLORIDE
     Dosage: 1 DF, UNK ONCE DAILY IN THE MORNING,
  5. LAMICTAL [Suspect]
     Active Substance: LAMOTRIGINE
     Dosage: 100 MG, QD
     Route: 048
     Dates: start: 20100923
  6. KARDEGIC [Concomitant]
     Active Substance: ASPIRIN LYSINE
     Dosage: 160 ONE SACHET DAILY
  7. EXELON [Concomitant]
     Active Substance: RIVASTIGMINE TARTRATE
     Indication: PRODUCT USED FOR UNKNOWN INDICATION
     Dosage: 4.5 MG, BID
  8. LAMICTAL [Suspect]
     Active Substance: LAMOTRIGINE
     Indication: TRANSIENT ISCHAEMIC ATTACK
     Dosage: 25 MG, QD
     Route: 048
     Dates: start: 20090826
  9. LAMICTAL [Suspect]
     Active Substance: LAMOTRIGINE
     Dosage: 25 MG, QD
     Route: 048
     Dates: start: 20120614, end: 20120913
  10. VASTEN [Concomitant]
     Active Substance: PRAVASTATIN SODIUM

REACTIONS (22)
  - Aphasia [Not Recovered/Not Resolved]
  - Somnolence [Unknown]
  - Cognitive disorder [Unknown]
  - Hypothermia [Unknown]
  - Abasia [Recovering/Resolving]
  - Off label use [Unknown]
  - Abnormal behaviour [Unknown]
  - Aggression [Unknown]
  - Myocardial infarction [Fatal]
  - Agitation [Unknown]
  - Balance disorder [Unknown]
  - General physical health deterioration [Recovered/Resolved]
  - Urinary tract infection [Unknown]
  - Tremor [Unknown]
  - Parkinsonian gait [Unknown]
  - Constipation [Unknown]
  - Loss of personal independence in daily activities [Recovered/Resolved]
  - Diarrhoea [Unknown]
  - Hypotension [Unknown]
  - Chills [Unknown]
  - Cerebrovascular accident [Unknown]
  - Cardiac arrest [Fatal]

NARRATIVE: CASE EVENT DATE: 2010
